FAERS Safety Report 8340477 (Version 2)
Quarter: 2013Q1

REPORT INFORMATION
  Report Type: Spontaneous
  Country: US (occurrence: US)
  Receive Date: 20120117
  Receipt Date: 20130205
  Transmission Date: 20140127
  Serious: Yes (Other)
  Sender: FDA-Public Use
  Company Number: US-ASTRAZENECA-2012SE01498

PATIENT
  Age: 64 Year
  Sex: Male

DRUGS (5)
  1. CRESTOR [Suspect]
     Route: 048
  2. ACIPHEX [Concomitant]
  3. ADVAIR [Concomitant]
  4. MAGNESIUM [Concomitant]
  5. SINGULAIR [Concomitant]

REACTIONS (3)
  - Metastases to bone [Unknown]
  - Prostate cancer stage IV [Unknown]
  - Diabetes mellitus [Unknown]
